FAERS Safety Report 8216503 (Version 2)
Quarter: 2019Q1

REPORT INFORMATION
  Report Type: Spontaneous
  Country: GB (occurrence: GB)
  Receive Date: 20111031
  Receipt Date: 20190306
  Transmission Date: 20190418
  Serious: Yes (Other)
  Sender: FDA-Public Use
  Company Number: GB-PFIZER INC-2011263453

PATIENT
  Age: 44 Year
  Sex: Female

DRUGS (4)
  1. CHAMPIX [Suspect]
     Active Substance: VARENICLINE TARTRATE
     Indication: SMOKING CESSATION THERAPY
     Dosage: 0.5MG, 1MG
     Route: 048
     Dates: start: 20101006, end: 20111014
  2. AMITRIPTYLINE [Concomitant]
     Active Substance: AMITRIPTYLINE
     Indication: ANALGESIC THERAPY
     Dosage: 25MG/50MG
     Route: 048
     Dates: start: 20110930
  3. QUININE BISULFATE [Concomitant]
     Active Substance: QUININE BISULFATE
     Indication: MUSCLE SPASMS
     Dosage: 300 MG, UNK
     Route: 048
     Dates: start: 20110930
  4. COCODAMOL [Concomitant]
     Active Substance: ACETAMINOPHEN\CODEINE PHOSPHATE
     Indication: ANALGESIC THERAPY
     Dosage: 500 MG, UNK, (30/500MG)
     Route: 048
     Dates: start: 20110930

REACTIONS (1)
  - Emotional disorder [Recovering/Resolving]

NARRATIVE: CASE EVENT DATE: 20111012
